FAERS Safety Report 6173696-4 (Version None)
Quarter: 2009Q2

REPORT INFORMATION
  Report Type: 
  Country: None (occurrence: None)
  Receive Date: 20090430
  Receipt Date: 20090420
  Transmission Date: 20091009
  Serious: Yes (Other)
  Sender: FDA-Public Use
  Company Number: PHHY2009VE15670

PATIENT
  Sex: Female

DRUGS (1)
  1. ACLASTA [Suspect]
     Dosage: 5MG/ANNUAL
     Dates: start: 20090403

REACTIONS (4)
  - ABASIA [None]
  - CHILLS [None]
  - DIPLOPIA [None]
  - VERTIGO [None]
